FAERS Safety Report 9684304 (Version 3)
Quarter: 2014Q1

REPORT INFORMATION
  Report Type: Spontaneous
  Country: TN (occurrence: TN)
  Receive Date: 20131112
  Receipt Date: 20140102
  Transmission Date: 20141002
  Serious: Yes (Life-Threatening, Hospitalization, Other)
  Sender: FDA-Public Use
  Company Number: TN-UCBSA-102765

PATIENT
  Sex: Female

DRUGS (3)
  1. KEPPRA [Suspect]
     Indication: EPILEPSY
     Dates: start: 201307, end: 201307
  2. SODIUM VALPROATE [Concomitant]
     Indication: EPILEPSY
  3. TEDEMA [Concomitant]

REACTIONS (6)
  - Cardiac arrest [Recovering/Resolving]
  - Respiratory disorder [Recovering/Resolving]
  - Cerebellar syndrome [Recovering/Resolving]
  - Urticaria [Recovering/Resolving]
  - Chest discomfort [Recovering/Resolving]
  - Influenza like illness [Recovering/Resolving]
